FAERS Safety Report 8336625-0 (Version None)
Quarter: 2012Q2

REPORT INFORMATION
  Report Type: 
  Country: None (occurrence: None)
  Receive Date: 20120504
  Receipt Date: 20120426
  Transmission Date: 20120825
  Serious: No
  Sender: FDA-Public Use
  Company Number: JP-MPIJNJ-2012-02693

PATIENT

DRUGS (10)
  1. VELCADE [Suspect]
     Indication: MULTIPLE MYELOMA
     Dosage: 1.3 MG/M2, UNK
     Route: 042
     Dates: start: 20110719, end: 20120120
  2. HACHIAZULE                         /00523101/ [Concomitant]
     Indication: INFECTION PROPHYLAXIS
     Dosage: UNK
     Route: 049
     Dates: end: 20110708
  3. LENADEXON [Suspect]
     Indication: MULTIPLE MYELOMA
     Dosage: 20 MG, QD
     Route: 048
     Dates: start: 20110719, end: 20120121
  4. LENADEXON [Suspect]
     Dosage: 8 MG, QD
     Route: 048
     Dates: start: 20120131, end: 20120404
  5. DECADRON [Suspect]
     Indication: MULTIPLE MYELOMA
     Dosage: 2 MG, QD
     Route: 048
     Dates: start: 20120131, end: 20120404
  6. VELCADE [Suspect]
     Dosage: 1.3 MG/M2, UNK
     Route: 042
     Dates: start: 20120131, end: 20120403
  7. GASTER                             /00706001/ [Concomitant]
     Indication: GASTRITIS ATROPHIC
     Dosage: 10 MG, QD
     Route: 048
  8. GASTER                             /00706001/ [Concomitant]
     Dosage: 20 UNK, UNK
     Route: 048
     Dates: start: 20110809
  9. HACHIAZULE                         /00523101/ [Concomitant]
     Dosage: UNK
     Route: 049
     Dates: start: 20110816
  10. CATLEP [Concomitant]
     Indication: BACK PAIN
     Dosage: UNK
     Route: 061

REACTIONS (1)
  - PERIODONTITIS [None]
